FAERS Safety Report 4894078-9 (Version None)
Quarter: 2006Q1

REPORT INFORMATION
  Report Type: 
  Country: None (occurrence: None)
  Receive Date: 20060127
  Receipt Date: 20050617
  Transmission Date: 20060701
  Serious: No
  Sender: FDA-Public Use
  Company Number: CHPA2004US06204

PATIENT
  Sex: Female

DRUGS (2)
  1. WELLBUTRIN [Suspect]
     Indication: DRUG USE FOR UNKNOWN INDICATION
     Route: 048
     Dates: start: 20041129
  2. NICOTINE [Suspect]
     Dosage: 21MG PER DAY
     Route: 062
     Dates: start: 20041101

REACTIONS (1)
  - MIGRAINE [None]
